FAERS Safety Report 19772235 (Version 1)
Quarter: 2021Q3

REPORT INFORMATION
  Report Type: Report from Study
  Country: CO (occurrence: CO)
  Receive Date: 20210901
  Receipt Date: 20210901
  Transmission Date: 20211014
  Serious: Yes (Hospitalization)
  Sender: FDA-Public Use
  Company Number: CO-BRISTOL-MYERS SQUIBB COMPANY-BMS-2021-085705

PATIENT
  Age: 63 Year
  Sex: Male
  Weight: 55 kg

DRUGS (1)
  1. NIVOLUMAB [Suspect]
     Active Substance: NIVOLUMAB
     Indication: LUNG NEOPLASM MALIGNANT
     Dosage: 150 MILLIGRAM EVERY 15 DAYS
     Route: 042
     Dates: start: 20190610, end: 20210825

REACTIONS (7)
  - Vomiting [Recovering/Resolving]
  - Mobility decreased [Unknown]
  - Food intolerance [Unknown]
  - Choking sensation [Recovering/Resolving]
  - Nausea [Unknown]
  - Abdominal pain [Recovering/Resolving]
  - Intentional product use issue [Unknown]

NARRATIVE: CASE EVENT DATE: 20210811
